FAERS Safety Report 9738436 (Version 2)
Quarter: 2013Q4

REPORT INFORMATION
  Report Type: Report from Study
  Country: DE (occurrence: DE)
  Receive Date: 20131208
  Receipt Date: 20131208
  Transmission Date: 20140711
  Serious: Yes (Death, Hospitalization)
  Sender: FDA-Public Use
  Company Number: DE-ROCHE-1161359

PATIENT
  Age: 84 Year
  Sex: Female
  Weight: 51.5 kg

DRUGS (2)
  1. METHOXY POLYETHYLENE GLYCOL-EPOETIN BETA [Suspect]
     Indication: NEPHROGENIC ANAEMIA
     Dosage: DATE OF LAST DOSE PRIOR TO SAE: 27/FEB/2012
     Route: 042
     Dates: start: 20110318
  2. METHOXY POLYETHYLENE GLYCOL-EPOETIN BETA [Suspect]
     Dosage: DATE OF LAST PRIOR TO SAE: 28/MAR/2012
     Route: 042
     Dates: start: 20110822

REACTIONS (2)
  - Gastric cancer [Fatal]
  - Back pain [Not Recovered/Not Resolved]
